FAERS Safety Report 15352070 (Version 2)
Quarter: 2018Q4

REPORT INFORMATION
  Report Type: Spontaneous
  Country: US (occurrence: US)
  Receive Date: 20180905
  Receipt Date: 20181009
  Transmission Date: 20190204
  Serious: No
  Sender: FDA-Public Use
  Company Number: US-PFIZER INC-2018358455

PATIENT
  Age: 75 Year
  Sex: Female
  Weight: 63 kg

DRUGS (1)
  1. ADVIL [Suspect]
     Active Substance: IBUPROFEN
     Indication: INTERVERTEBRAL DISC PROTRUSION
     Dosage: 200 MG, 2X/DAY (200MG TWO A DAY, ONE IN THE MORNING AND ONE AT NIGHT)

REACTIONS (2)
  - Product use complaint [Not Recovered/Not Resolved]
  - Foreign body in respiratory tract [Unknown]

NARRATIVE: CASE EVENT DATE: 201808
